FAERS Safety Report 5895577-3 (Version None)
Quarter: 2008Q3

REPORT INFORMATION
  Report Type: 
  Country: None (occurrence: None)
  Receive Date: 20080924
  Receipt Date: 20080124
  Transmission Date: 20090109
  Serious: Yes (Other)
  Sender: FDA-Public Use
  Company Number: US-ASTRAZENECA-2006UW08116

PATIENT
  Age: 51 Year
  Sex: Female
  Weight: 86.2 kg

DRUGS (4)
  1. SEROQUEL [Suspect]
     Indication: PANIC ATTACK
     Dosage: 50MG, 100MG, 150MG
     Route: 048
     Dates: start: 20040101, end: 20051201
  2. SEROQUEL [Suspect]
     Indication: BIPOLAR DISORDER
     Dosage: 50MG, 100MG, 150MG
     Route: 048
     Dates: start: 20040101, end: 20051201
  3. RISPERDAL [Concomitant]
     Dates: start: 20050101
  4. ZYPREXA [Concomitant]
     Dates: start: 20050101

REACTIONS (2)
  - BLOOD CHOLESTEROL INCREASED [None]
  - PANCREATITIS [None]
